FAERS Safety Report 8952293 (Version 3)
Quarter: 2013Q1

REPORT INFORMATION
  Report Type: Spontaneous
  Country: JP (occurrence: JP)
  Receive Date: 20121205
  Receipt Date: 20130116
  Transmission Date: 20140127
  Serious: Yes (Hospitalization)
  Sender: FDA-Public Use
  Company Number: JP-009507513-1212JPN000246

PATIENT
  Age: 60 Year
  Sex: Female
  Weight: 56 kg

DRUGS (8)
  1. PEGINTRON [Suspect]
     Indication: CHRONIC HEPATITIS C
     Dosage: 1.5 MICROGRAM PER KILOGRAM, QD
     Route: 058
     Dates: start: 20121016, end: 20121112
  2. REBETOL [Suspect]
     Indication: CHRONIC HEPATITIS C
     Dosage: 400 MG, QD
     Route: 048
     Dates: start: 20121016, end: 20121119
  3. TELAVIC [Suspect]
     Indication: CHRONIC HEPATITIS C
     Dosage: 1500 MG,QD
     Route: 048
     Dates: start: 20121016, end: 20121119
  4. URSO [Concomitant]
     Indication: CHRONIC HEPATITIS C
     Dosage: 600 MG, QD
     Route: 048
  5. GLYCYRON [Concomitant]
     Indication: CHRONIC HEPATITIS C
     Dosage: 6 DF, QD
     Route: 048
  6. AMLODIN (AMLODIPINE BESYLATE) [Concomitant]
     Dosage: 2.5 MG, QD
     Route: 048
  7. MAINTATE [Concomitant]
     Dosage: 2.5 MG, QD
     Route: 048
  8. TALION (BEPOTASTINE BESYLATE) [Concomitant]
     Indication: PROPHYLAXIS
     Dosage: 20 MG, QD
     Route: 048
     Dates: start: 20121015

REACTIONS (1)
  - Rash [Recovering/Resolving]
